FAERS Safety Report 5679915-2 (Version None)
Quarter: 2008Q1

REPORT INFORMATION
  Report Type: 
  Country: None (occurrence: None)
  Receive Date: 20080324
  Receipt Date: 20080314
  Transmission Date: 20080703
  Serious: Yes (Other)
  Sender: FDA-Public Use
  Company Number: 2008SP002577

PATIENT
  Sex: Female

DRUGS (9)
  1. PEGETRON (PEGINTERFERON ALFA-2B W/RIBAVIRIN) (PEGYLATED INTERFERON ALF [Suspect]
     Indication: HEPATITIS C
     Dosage: 120 MCG; SC; 100 MCG; SC; 1000 MG; PO; 800 MG; PO
     Route: 058
     Dates: start: 20070727, end: 20071220
  2. PEGETRON (PEGINTERFERON ALFA-2B W/RIBAVIRIN) (PEGYLATED INTERFERON ALF [Suspect]
     Indication: HEPATITIS C
     Dosage: 120 MCG; SC; 100 MCG; SC; 1000 MG; PO; 800 MG; PO
     Route: 058
     Dates: start: 20070727, end: 20080122
  3. PEGETRON (PEGINTERFERON ALFA-2B W/RIBAVIRIN) (PEGYLATED INTERFERON ALF [Suspect]
     Indication: HEPATITIS C
     Dosage: 120 MCG; SC; 100 MCG; SC; 1000 MG; PO; 800 MG; PO
     Route: 058
     Dates: start: 20071220, end: 20080207
  4. PEGETRON (PEGINTERFERON ALFA-2B W/RIBAVIRIN) (PEGYLATED INTERFERON ALF [Suspect]
     Indication: HEPATITIS C
     Dosage: 120 MCG; SC; 100 MCG; SC; 1000 MG; PO; 800 MG; PO
     Route: 058
     Dates: start: 20080123, end: 20080207
  5. ALTACE [Concomitant]
  6. HYDROCHLOROTHIAZIDE [Concomitant]
  7. METOPROLOL TARTRATE [Concomitant]
  8. NORVASC [Concomitant]
  9. L-THYROXINE [Concomitant]

REACTIONS (9)
  - ALOPECIA [None]
  - ANAEMIA [None]
  - DEMYELINATION [None]
  - DEPRESSION [None]
  - DISTURBANCE IN ATTENTION [None]
  - DIZZINESS [None]
  - FATIGUE [None]
  - HEADACHE [None]
  - HYPOTHYROIDISM [None]
